FAERS Safety Report 20299310 (Version 1)
Quarter: 2022Q1

REPORT INFORMATION
  Report Type: Spontaneous
  Country: US (occurrence: None)
  Receive Date: 20220104
  Receipt Date: 20220104
  Transmission Date: 20220424
  Serious: No
  Sender: FDA-Public Use
  Company Number: None

PATIENT
  Age: 63 Year
  Sex: Female
  Weight: 70.65 kg

DRUGS (7)
  1. IBRANCE [Suspect]
     Active Substance: PALBOCICLIB
     Indication: Breast cancer
     Dosage: OTHER FREQUENCY : QD FOR 21/28 DAYS;?
     Route: 048
     Dates: start: 20211123
  2. METOPROLOL TARTRATE [Concomitant]
     Active Substance: METOPROLOL TARTRATE
  3. LOSARTAN [Concomitant]
     Active Substance: LOSARTAN
  4. OMEPRAZOLE [Concomitant]
     Active Substance: OMEPRAZOLE
  5. FERROUS SULFATE [Concomitant]
     Active Substance: FERROUS SULFATE
  6. Calcium + D3 600mg-800IU [Concomitant]
  7. Stool softener 100mg [Concomitant]

REACTIONS (2)
  - Fatigue [None]
  - Urine odour abnormal [None]

NARRATIVE: CASE EVENT DATE: 20211231
